FAERS Safety Report 9665547 (Version 3)
Quarter: 2014Q1

REPORT INFORMATION
  Report Type: Spontaneous
  Country: US (occurrence: US)
  Receive Date: 20131104
  Receipt Date: 20140212
  Transmission Date: 20141002
  Serious: Yes (Other)
  Sender: FDA-Public Use
  Company Number: US-PFIZER INC-2013313293

PATIENT
  Age: 49 Year
  Sex: Female
  Weight: 68.03 kg

DRUGS (8)
  1. LYRICA [Suspect]
     Indication: MULTIPLE SCLEROSIS
     Dosage: 150 MG, 2X/DAY
     Dates: end: 20131030
  2. LYRICA [Suspect]
     Indication: FIBROMYALGIA
  3. PROZAC [Concomitant]
     Dosage: UNK
  4. DIAZEPAM [Concomitant]
     Dosage: UNK
  5. VITAMIN D [Concomitant]
     Dosage: UNK
  6. ASPIRIN [Concomitant]
     Dosage: UNK
  7. TRAZODONE [Concomitant]
     Dosage: UNK
  8. AUBAGIO [Concomitant]
     Dosage: UNK

REACTIONS (14)
  - Off label use [Unknown]
  - Gastroenteritis norovirus [Recovering/Resolving]
  - Anxiety [Unknown]
  - Hyperhidrosis [Unknown]
  - Diarrhoea [Unknown]
  - Insomnia [Unknown]
  - Nausea [Recovering/Resolving]
  - Headache [Unknown]
  - Pain in extremity [Unknown]
  - Pain [Unknown]
  - Blood potassium decreased [Unknown]
  - Weight decreased [Recovering/Resolving]
  - Muscle spasms [Recovering/Resolving]
  - Malaise [Recovering/Resolving]
